FAERS Safety Report 8371722-5 (Version None)
Quarter: 2012Q2

REPORT INFORMATION
  Report Type: 
  Country: None (occurrence: None)
  Receive Date: 20120518
  Receipt Date: 20120514
  Transmission Date: 20120825
  Serious: Yes (Other)
  Sender: FDA-Public Use
  Company Number: US-ELI_LILLY_AND_COMPANY-US201204008361

PATIENT
  Sex: Male
  Weight: 74.83 kg

DRUGS (14)
  1. METFORMIN HCL [Concomitant]
     Indication: TYPE 2 DIABETES MELLITUS
     Dosage: 500 MG, QD
     Route: 048
  2. GLUCOPHAGE [Concomitant]
  3. AVODART [Concomitant]
     Dosage: UNK
     Dates: start: 20091001
  4. LIPITOR [Concomitant]
     Dosage: UNK
     Dates: start: 20010101
  5. GLIPIZIDE [Concomitant]
     Dosage: UNK
     Dates: start: 20070401
  6. JANUVIA [Concomitant]
     Dosage: UNK
     Dates: start: 20100401, end: 20101101
  7. BYETTA [Suspect]
     Dosage: 10 UG, BID
     Route: 058
     Dates: start: 20101224, end: 20110908
  8. FLOVENT [Concomitant]
     Dosage: UNK
     Dates: start: 20000101
  9. PRANDIN [Concomitant]
     Indication: TYPE 2 DIABETES MELLITUS
     Dosage: 5 MG, BID
     Route: 048
  10. VASOTEC [Concomitant]
     Dosage: UNK
     Dates: start: 20010101
  11. ACTOS [Concomitant]
     Dosage: UNK
     Dates: start: 20091001, end: 20110801
  12. BYETTA [Suspect]
     Indication: TYPE 2 DIABETES MELLITUS
     Dosage: 5 UG, BID
     Route: 058
     Dates: start: 20101123, end: 20101223
  13. WARFARIN SODIUM [Concomitant]
  14. ADVAIR DISKUS 100/50 [Concomitant]
     Dosage: UNK
     Dates: start: 20000101

REACTIONS (6)
  - HEPATIC CYST [None]
  - HERNIA [None]
  - BENIGN PROSTATIC HYPERPLASIA [None]
  - CHOLELITHIASIS [None]
  - WEIGHT DECREASED [None]
  - ADENOCARCINOMA PANCREAS [None]
